FAERS Safety Report 4084778 (Version 6)
Quarter: 2020Q3

REPORT INFORMATION
  Report Type: Report from Study
  Country: IN (occurrence: IN)
  Receive Date: 20040130
  Receipt Date: 20090723
  Transmission Date: 20201104
  Serious: Yes (Hospitalization, Other)
  Sender: FDA-Public Use
  Company Number: IN-JNJFOC-20040103396

PATIENT
  Age: 26 Year
  Sex: Male
  Weight: 40 kg

DRUGS (3)
  1. RISPERIDONE. [Suspect]
     Active Substance: RISPERIDONE
     Indication: SCHIZOPHRENIA
     Route: 048
     Dates: start: 20031229, end: 20040209
  2. FEFOL [Concomitant]
     Route: 048
  3. RISPERIDONE. [Suspect]
     Active Substance: RISPERIDONE
     Route: 048
     Dates: start: 20031229, end: 20040209

REACTIONS (5)
  - Leukopenia [Recovering/Resolving]
  - Iron deficiency anaemia [Recovered/Resolved]
  - Jaundice [Recovered/Resolved]
  - Duodenal ulcer [Recovered/Resolved]
  - Eosinophilia [Recovering/Resolving]

NARRATIVE: CASE EVENT DATE: 20040101
